FAERS Safety Report 16858838 (Version 1)
Quarter: 2019Q3

REPORT INFORMATION
  Report Type: Report from Study
  Country: US (occurrence: US)
  Receive Date: 20190926
  Receipt Date: 20190926
  Transmission Date: 20191005
  Serious: Yes (Hospitalization)
  Sender: FDA-Public Use
  Company Number: US-ACTELION-A-NJ2019-196102

PATIENT
  Age: 57 Year
  Sex: Female
  Weight: 88.44 kg

DRUGS (2)
  1. ADEMPAS [Concomitant]
     Active Substance: RIOCIGUAT
  2. OPSUMIT [Suspect]
     Active Substance: MACITENTAN
     Indication: PULMONARY ARTERIAL HYPERTENSION
     Dosage: 10 MG, QD
     Route: 048

REACTIONS (8)
  - Renal failure [Unknown]
  - Disturbance in attention [Unknown]
  - Abdominal pain [Unknown]
  - Oedema [Unknown]
  - Mental status changes [Unknown]
  - Hepatic failure [Unknown]
  - Hospitalisation [Unknown]
  - Fluid retention [Unknown]

NARRATIVE: CASE EVENT DATE: 20190722
